FAERS Safety Report 5269663-5 (Version None)
Quarter: 2007Q1

REPORT INFORMATION
  Report Type: 
  Country: None (occurrence: None)
  Receive Date: 20061218
  Receipt Date: 20061016
  Transmission Date: 20070707
  Serious: Yes (Other)
  Sender: FDA-Public Use
  Company Number: US20061003458

PATIENT
  Age: 63 Year
  Sex: Male

DRUGS (2)
  1. HUMALOG [Suspect]
     Indication: DIABETES MELLITUS
  2. LANTUS [Concomitant]

REACTIONS (5)
  - BLINDNESS [None]
  - DIABETIC RETINOPATHY [None]
  - MACULAR DEGENERATION [None]
  - PARKINSON'S DISEASE [None]
  - VISUAL ACUITY REDUCED [None]
